APPROVED DRUG PRODUCT: ORTHO-NOVUM 10/11-28
Active Ingredient: ETHINYL ESTRADIOL; NORETHINDRONE
Strength: 0.035MG,0.035MG;0.5MG,1MG
Dosage Form/Route: TABLET;ORAL-28
Application: N018354 | Product #002
Applicant: ORTHO MCNEIL JANSSEN PHARMACEUTICALS INC
Approved: Jan 11, 1982 | RLD: Yes | RS: No | Type: DISCN